FAERS Safety Report 24355678 (Version 1)
Quarter: 2024Q3

REPORT INFORMATION
  Report Type: Spontaneous
  Country: US (occurrence: US)
  Receive Date: 20240924
  Receipt Date: 20240924
  Transmission Date: 20241016
  Serious: No
  Sender: CIPLA
  Company Number: US-CIPLA LTD.-2023US06588

PATIENT

DRUGS (2)
  1. DICLOFENAC [Suspect]
     Active Substance: DICLOFENAC
     Indication: Tendonitis
     Dosage: 1 GRAM, TID
     Route: 061
     Dates: start: 202310, end: 202310
  2. DICLOFENAC [Suspect]
     Active Substance: DICLOFENAC
     Dosage: 2 GRAM, TID
     Route: 061
     Dates: start: 202310

REACTIONS (6)
  - Gait disturbance [Not Recovered/Not Resolved]
  - Chromaturia [Not Recovered/Not Resolved]
  - Insomnia [Not Recovered/Not Resolved]
  - Pain [Not Recovered/Not Resolved]
  - Off label use [Unknown]
  - Intentional product use issue [Unknown]

NARRATIVE: CASE EVENT DATE: 20231001
